FAERS Safety Report 10068019 (Version 1)
Quarter: 2014Q2

REPORT INFORMATION
  Report Type: Spontaneous
  Country: GB (occurrence: GB)
  Receive Date: 20140409
  Receipt Date: 20140409
  Transmission Date: 20141212
  Serious: Yes (Other)
  Sender: FDA-Public Use
  Company Number: GB-ACTAVIS-2014-06516

PATIENT
  Age: 39 Year
  Sex: Female

DRUGS (2)
  1. TRIAMCINOLONE ACETONIDE (AMALLC) [Suspect]
     Indication: CYSTOID MACULAR OEDEMA
     Dosage: 40 MG, SINGLE, REPEATED AFTER 3 MONTHS
  2. KALETRA [Interacting]
     Indication: HIV INFECTION
     Dosage: UNK
     Route: 065

REACTIONS (2)
  - Cushing^s syndrome [Recovered/Resolved]
  - Drug interaction [Recovered/Resolved]
